FAERS Safety Report 13382302 (Version 2)
Quarter: 2017Q2

REPORT INFORMATION
  Report Type: Spontaneous
  Country: CR (occurrence: CR)
  Receive Date: 20170329
  Receipt Date: 20170501
  Transmission Date: 20170830
  Serious: Yes (Disabling, Other)
  Sender: FDA-Public Use
  Company Number: CR-PFIZER INC-2017129800

PATIENT
  Age: 31 Year
  Sex: Female

DRUGS (1)
  1. ALTRULINE [Suspect]
     Active Substance: SERTRALINE HYDROCHLORIDE
     Indication: DEPRESSION
     Dosage: 50 MG, DAILY
     Route: 048
     Dates: start: 20170201

REACTIONS (4)
  - Nausea [Not Recovered/Not Resolved]
  - Anxiety [Recovered/Resolved]
  - Burning sensation [Recovered/Resolved]
  - Obstructive airways disorder [Recovered/Resolved]

NARRATIVE: CASE EVENT DATE: 2017
